FAERS Safety Report 4757446-1 (Version None)
Quarter: 2005Q3

REPORT INFORMATION
  Report Type: 
  Country: None (occurrence: None)
  Receive Date: 20050831
  Receipt Date: 20050826
  Transmission Date: 20060218
  Serious: Yes (Death)
  Sender: FDA-Public Use
  Company Number: DE-SANOFI-SYNTHELABO-F04200500146

PATIENT
  Sex: Male
  Weight: 83 kg

DRUGS (3)
  1. ELOXATIN [Suspect]
     Indication: GASTRIC CANCER
     Route: 041
     Dates: start: 20050729, end: 20050729
  2. TAXOTERE [Suspect]
     Indication: GASTRIC CANCER
     Route: 041
     Dates: start: 20050729, end: 20050729
  3. XELODA [Suspect]
     Indication: GASTRIC CANCER
     Dosage: 1739.8 MG/M2
     Route: 048
     Dates: start: 20050701

REACTIONS (1)
  - DEATH [None]
